FAERS Safety Report 9775248 (Version 1)
Quarter: 2013Q4

REPORT INFORMATION
  Report Type: Spontaneous
  Country: US (occurrence: None)
  Receive Date: 20131219
  Receipt Date: 20131219
  Transmission Date: 20140711
  Serious: Yes (Life-Threatening, Hospitalization, Disabling)
  Sender: FDA-Public Use
  Company Number: None

PATIENT
  Age: 41 Year
  Sex: Male
  Weight: 83.92 kg

DRUGS (7)
  1. CEFTRIAXONE SODIUM [Suspect]
     Indication: EYE INFECTION
     Dates: start: 20131114, end: 20131114
  2. LORAZEPAM [Concomitant]
  3. PAROXETINE 20 MG - TAKE 1 DAILY [Concomitant]
  4. TYLENOL [Concomitant]
  5. PRILOSEC [Concomitant]
  6. PREDNISONE 10 MG [Concomitant]
  7. LORAZEPAM 1 GM -  EVERY 8 HOURS [Concomitant]

REACTIONS (9)
  - Chest pain [None]
  - Heart rate increased [None]
  - Dizziness [None]
  - Nausea [None]
  - Tremor [None]
  - Vision blurred [None]
  - Hyperhidrosis [None]
  - Chills [None]
  - Dizziness [None]
